FAERS Safety Report 18677850 (Version 4)
Quarter: 2023Q1

REPORT INFORMATION
  Report Type: Spontaneous
  Country: US (occurrence: US)
  Receive Date: 20201229
  Receipt Date: 20230103
  Transmission Date: 20230418
  Serious: No
  Sender: FDA-Public Use
  Company Number: US-PFIZER INC-2020513634

PATIENT
  Age: 61 Year
  Sex: Female

DRUGS (1)
  1. IBRANCE [Suspect]
     Active Substance: PALBOCICLIB
     Indication: Breast cancer male
     Dosage: 21 DAYS OFF, 7 OFF
     Dates: start: 20201113

REACTIONS (5)
  - Headache [Unknown]
  - Urine odour abnormal [Unknown]
  - Pollakiuria [Unknown]
  - Dysuria [Unknown]
  - Malaise [Unknown]
